FAERS Safety Report 5308891-7 (Version None)
Quarter: 2007Q2

REPORT INFORMATION
  Report Type: 
  Country: None (occurrence: None)
  Receive Date: 20070426
  Receipt Date: 20070417
  Transmission Date: 20071010
  Serious: Yes (Other)
  Sender: FDA-Public Use
  Company Number: US-PFIZER INC-2006050510

PATIENT
  Sex: Female
  Weight: 56.7 kg

DRUGS (9)
  1. CELEBREX [Suspect]
     Indication: BONE PAIN
     Route: 065
     Dates: start: 20060201, end: 20060411
  2. CELEBREX [Suspect]
     Indication: SWELLING
  3. CELEBREX [Suspect]
     Indication: BACK DISORDER
  4. MOTRIN [Suspect]
     Indication: BONE PAIN
     Dosage: FREQ:UNKNOWN
     Route: 065
  5. MOTRIN [Suspect]
     Indication: SWELLING
  6. MOTRIN [Suspect]
     Indication: BACK DISORDER
  7. VICODIN [Concomitant]
     Route: 065
  8. TYLENOL [Concomitant]
     Route: 065
  9. ZYRTEC [Concomitant]
     Route: 065

REACTIONS (7)
  - ANGINA PECTORIS [None]
  - EPISTAXIS [None]
  - EXTRASYSTOLES [None]
  - PALPITATIONS [None]
  - RESPIRATORY DISORDER [None]
  - SOMATISATION DISORDER [None]
  - ULCER HAEMORRHAGE [None]
